FAERS Safety Report 6600807-6 (Version None)
Quarter: 2010Q1

REPORT INFORMATION
  Report Type: 
  Country: None (occurrence: None)
  Receive Date: 20100223
  Receipt Date: 20100223
  Transmission Date: 20100710
  Serious: Yes (Other)
  Sender: FDA-Public Use
  Company Number: None

PATIENT
  Age: 35 Year
  Sex: Female
  Weight: 113.3993 kg

DRUGS (1)
  1. MIRENA [Suspect]
     Indication: CONTRACEPTION
     Dosage: CONTINUOUS REPLACEMENT
     Dates: start: 20040206, end: 20100220

REACTIONS (4)
  - FLUSHING [None]
  - HOT FLUSH [None]
  - MOOD SWINGS [None]
  - PALPITATIONS [None]
